FAERS Safety Report 17715816 (Version 1)
Quarter: 2020Q2

REPORT INFORMATION
  Report Type: Other
  Country: US (occurrence: US)
  Receive Date: 20200428
  Receipt Date: 20200428
  Transmission Date: 20200714
  Serious: Yes (Other)
  Sender: FDA-Public Use
  Company Number: US-STANDARD HOMEOPATHIC COMPANY-2083185

PATIENT
  Age: 7 Month
  Sex: Female

DRUGS (3)
  1. BABY NIGHTTIME TINY COLD SYRUP [Suspect]
     Active Substance: HOMEOPATHICS
     Indication: RHINORRHOEA
     Route: 048
     Dates: start: 20200411, end: 20200411
  2. BABY NIGHTTIME TINY COLD SYRUP [Suspect]
     Active Substance: HOMEOPATHICS
     Indication: PULMONARY CONGESTION
     Route: 048
     Dates: start: 20200411, end: 20200411
  3. BABY NIGHTTIME TINY COLD SYRUP [Suspect]
     Active Substance: HOMEOPATHICS
     Indication: INSOMNIA
     Route: 048
     Dates: start: 20200411, end: 20200411

REACTIONS (2)
  - Pyrexia [Unknown]
  - Condition aggravated [Unknown]

NARRATIVE: CASE EVENT DATE: 20200414
